FAERS Safety Report 8955854 (Version 1)
Quarter: 2012Q4

REPORT INFORMATION
  Report Type: 
  Country: FR (occurrence: FR)
  Receive Date: 20121210
  Receipt Date: 20121210
  Transmission Date: 20130627
  Serious: Yes (Death, Hospitalization, Other)
  Sender: FDA-Public Use
  Company Number: FR-ACTELION-A-CH2012-63993

PATIENT
  Age: 9 Month
  Sex: Male
  Weight: 8.4 kg

DRUGS (1)
  1. ZAVESCA [Suspect]
     Indication: LIPIDOSIS
     Dosage: 100 mg, od
     Route: 048
     Dates: start: 201203

REACTIONS (20)
  - Lung infection [Fatal]
  - Lipidosis [Unknown]
  - Disease progression [Unknown]
  - Epilepsy [Recovering/Resolving]
  - Weight decreased [Recovering/Resolving]
  - Respiratory disorder [Unknown]
  - Condition aggravated [Unknown]
  - Dysphagia [Unknown]
  - Gastrostomy [Unknown]
  - Diarrhoea [Recovering/Resolving]
  - Decreased appetite [Recovering/Resolving]
  - Fatigue [Unknown]
  - Anxiety [Unknown]
  - Cyanosis [Unknown]
  - Sleep apnoea syndrome [Unknown]
  - Muscle spasms [Unknown]
  - Aspiration [Unknown]
  - Tachycardia [Unknown]
  - Tremor [Unknown]
  - Viral infection [Unknown]
